FAERS Safety Report 11726780 (Version 1)
Quarter: 2015Q4

REPORT INFORMATION
  Report Type: Spontaneous
  Country: US (occurrence: US)
  Receive Date: 20151112
  Receipt Date: 20151112
  Transmission Date: 20160304
  Serious: No
  Sender: FDA-Public Use
  Company Number: US-009507513-1511USA005637

PATIENT
  Sex: Male

DRUGS (2)
  1. VYVANSE [Suspect]
     Active Substance: LISDEXAMFETAMINE DIMESYLATE
  2. BELSOMRA [Suspect]
     Active Substance: SUVOREXANT
     Dosage: 10 MG DAILY
     Route: 048

REACTIONS (1)
  - Anaphylactic reaction [Recovered/Resolved]
